FAERS Safety Report 7487540-6 (Version None)
Quarter: 2011Q2

REPORT INFORMATION
  Report Type: 
  Country: None (occurrence: None)
  Receive Date: 20110511
  Receipt Date: 20110427
  Transmission Date: 20111010
  Serious: Yes (Death)
  Sender: FDA-Public Use
  Company Number: 2009AP004380

PATIENT
  Age: 89 Year
  Sex: Female

DRUGS (16)
  1. ROPINIROLE HYDROCHLORIDE [Suspect]
     Indication: PARKINSON'S DISEASE
     Dosage: 1 MG, PO TID; 2 MG PO TID; 3 MG PO, TID
     Route: 048
     Dates: start: 20070918
  2. FUROSEMIDE [Concomitant]
  3. CARBIDOPA [Concomitant]
  4. ACETYLSALICYLIC ACID SRT [Concomitant]
  5. DIGOXIN [Concomitant]
  6. LEVODOPA [Concomitant]
  7. ROPINIROLE [Concomitant]
  8. CARBIMAZOLE [Concomitant]
  9. BISOPROLOL FUMARATE [Concomitant]
  10. FERROUS SULFATE TAB [Concomitant]
  11. SINEMET [Concomitant]
  12. AMOXICILLIN TRIHYDRATE [Concomitant]
  13. LACTULOSE [Concomitant]
  14. RISPERIDONE [Suspect]
     Indication: PARKINSON'S DISEASE
     Dosage: 9 MG, PO
     Route: 048
  15. SPARTEINE SULFATE [Concomitant]
  16. FORTISIP [Concomitant]

REACTIONS (4)
  - OFF LABEL USE [None]
  - WRONG DRUG ADMINISTERED [None]
  - MEDICATION ERROR [None]
  - GENERAL PHYSICAL HEALTH DETERIORATION [None]
